FAERS Safety Report 5374940-3 (Version None)
Quarter: 2007Q2

REPORT INFORMATION
  Report Type: 
  Country: None (occurrence: None)
  Receive Date: 20070629
  Receipt Date: 20070619
  Transmission Date: 20071010
  Serious: Yes (Hospitalization)
  Sender: FDA-Public Use
  Company Number: JP-SANOFI-SYNTHELABO-A01200706596

PATIENT
  Age: 88 Year
  Sex: Female

DRUGS (11)
  1. LUVOX [Concomitant]
     Indication: DEPRESSION
     Dosage: 25 MG
     Route: 048
     Dates: start: 20061001
  2. ASPIRIN [Concomitant]
     Indication: CEREBRAL INFARCTION
     Dosage: 100 MG
     Route: 048
     Dates: start: 20061001
  3. LOCHOL [Concomitant]
     Indication: HYPERLIPIDAEMIA
     Dosage: 20 MG
     Route: 048
     Dates: start: 20061001
  4. PARIET [Concomitant]
     Indication: REFLUX OESOPHAGITIS
     Dosage: 10 MG
     Route: 048
     Dates: start: 20061001
  5. DIGOSIN [Concomitant]
     Indication: CARDIAC FAILURE
     Dosage: 0.25 MG
     Route: 048
     Dates: start: 20061001
  6. LUPRAC [Concomitant]
     Indication: CARDIAC FAILURE
     Dosage: 4 MG
     Route: 048
     Dates: start: 20061001
  7. ARTIST [Concomitant]
     Indication: CARDIAC FAILURE
     Dosage: 2.5 MG
     Route: 048
     Dates: start: 20061001
  8. MICARDIS [Concomitant]
     Indication: HYPERTENSION
     Dosage: 40 MG
     Route: 048
     Dates: start: 20061001
  9. CALBLOCK [Concomitant]
     Indication: HYPERTENSION
     Dosage: 16 MG
     Route: 048
     Dates: start: 20061001
  10. ZOLPIDEM [Suspect]
     Indication: INSOMNIA
     Route: 048
     Dates: start: 20070515, end: 20070515
  11. LUVOX [Suspect]
     Indication: DRUG USE FOR UNKNOWN INDICATION
     Dosage: UNK
     Route: 048
     Dates: start: 20060101

REACTIONS (1)
  - DELIRIUM [None]
